FAERS Safety Report 10369132 (Version 1)
Quarter: 2014Q1

REPORT INFORMATION
  Report Type: Spontaneous
  Country: US (occurrence: None)
  Receive Date: 20140306
  Receipt Date: 20140306
  Transmission Date: 20141002
  Serious: Yes (Other)
  Sender: FDA-Public Use
  Company Number: 163-21880-13033047

PATIENT
  Age: 71 Year
  Sex: Female

DRUGS (3)
  1. REVLIMID (LENALIDOMIDE) (5 MILLIGRAM, CAPSULES) [Suspect]
     Indication: 5Q MINUS SYNDROME
     Route: 048
     Dates: start: 201203
  2. ARANESP (DARBEPOETIN ALFA) (UNKNOWN) [Concomitant]
  3. NEXIUM (ESOMEPRAZOLE) (UNKNOWN) [Concomitant]

REACTIONS (1)
  - Rash pruritic [None]
